FAERS Safety Report 10305531 (Version 1)
Quarter: 2014Q3

REPORT INFORMATION
  Report Type: Spontaneous
  Country: FR (occurrence: FR)
  Receive Date: 20140715
  Receipt Date: 20140715
  Transmission Date: 20150326
  Serious: Yes (Hospitalization)
  Sender: FDA-Public Use
  Company Number: FR-SA-2014SA091693

PATIENT
  Age: 54 Year
  Sex: Female

DRUGS (2)
  1. PAXELADINE [Suspect]
     Active Substance: OXELADIN CITRATE
     Indication: COUGH
     Route: 048
     Dates: start: 20140513, end: 20140516
  2. KETEK [Suspect]
     Active Substance: TELITHROMYCIN
     Indication: COUGH
     Route: 048
     Dates: start: 20140513, end: 20140516

REACTIONS (5)
  - Pyrexia [Unknown]
  - Leukopenia [Unknown]
  - Agranulocytosis [Unknown]
  - Neutropenia [Unknown]
  - Erythema [Unknown]

NARRATIVE: CASE EVENT DATE: 20140516
